FAERS Safety Report 7218012-1 (Version None)
Quarter: 2011Q1

REPORT INFORMATION
  Report Type: 
  Country: None (occurrence: None)
  Receive Date: 20110110
  Receipt Date: 20110105
  Transmission Date: 20110831
  Serious: Yes (Hospitalization)
  Sender: FDA-Public Use
  Company Number: US-AMGEN-USASP2011000771

PATIENT

DRUGS (6)
  1. CALCIUM [Concomitant]
     Dosage: UNK
     Dates: start: 20000101
  2. POTASSIUM [Concomitant]
     Dosage: UNK
     Dates: start: 20000101
  3. ANTIHYPERTENSIVES [Concomitant]
     Dosage: UNK
     Dates: start: 20000101
  4. PROCRIT [Suspect]
     Indication: PRODUCT USED FOR UNKNOWN INDICATION
     Dosage: 20000 IU, UNK
     Route: 058
     Dates: start: 20090101
  5. PLAVIX [Concomitant]
     Dosage: UNK
     Dates: start: 20000101
  6. DIURETIC                           /00022001/ [Concomitant]
     Dosage: UNK
     Route: 048
     Dates: start: 20000101

REACTIONS (4)
  - HIP FRACTURE [None]
  - INJECTION SITE PAIN [None]
  - ASTHENIA [None]
  - FALL [None]
